FAERS Safety Report 5695449-3 (Version None)
Quarter: 2008Q2

REPORT INFORMATION
  Report Type: 
  Country: None (occurrence: None)
  Receive Date: 20080403
  Receipt Date: 20080320
  Transmission Date: 20081010
  Serious: Yes (Death)
  Sender: FDA-Public Use
  Company Number: 2008000637

PATIENT
  Age: 81 Year
  Sex: Male
  Weight: 64.9 kg

DRUGS (2)
  1. ERLOTINIB (ERLOTINIB HCL) (TABLET) (ERLOTINIB HCL) [Suspect]
     Indication: LUNG ADENOCARCINOMA
     Dosage: (150 MG, QD), ORAL
     Route: 048
     Dates: start: 20080205
  2. BEVACIZUMAB (INJECTION FOR INFUSION) [Suspect]
     Indication: LUNG ADENOCARCINOMA
     Dosage: (15 MG/KG, Q21D), INTRAVENOUS
     Route: 042
     Dates: start: 20080205

REACTIONS (1)
  - UNRESPONSIVE TO STIMULI [None]
